FAERS Safety Report 9862434 (Version 3)
Quarter: 2014Q1

REPORT INFORMATION
  Report Type: Spontaneous
  Country: US (occurrence: None)
  Receive Date: 20140131
  Receipt Date: 20140326
  Transmission Date: 20141002
  Serious: Yes (Hospitalization, Other)
  Sender: FDA-Public Use
  Company Number: 2014CT000002

PATIENT
  Age: 70 Year
  Sex: Female
  Weight: 65.77 kg

DRUGS (2)
  1. KORLYM [Suspect]
     Indication: CUSHING^S SYNDROME
     Route: 048
     Dates: start: 20131219, end: 201401
  2. FUROSEMIDE [Concomitant]

REACTIONS (10)
  - Hypophagia [None]
  - Hot flush [None]
  - Feeling cold [None]
  - Oedema peripheral [None]
  - Asthenia [None]
  - Pain in extremity [None]
  - Poor quality sleep [None]
  - Dizziness [None]
  - Pruritus [None]
  - Blood glucose increased [None]
